FAERS Safety Report 24201306 (Version 1)
Quarter: 2024Q3

REPORT INFORMATION
  Report Type: Other
  Country: US (occurrence: US)
  Receive Date: 20240812
  Receipt Date: 20240812
  Transmission Date: 20241017
  Serious: Yes (Hospitalization)
  Sender: DENTSPLY
  Company Number: US-DENTSPLY-2024SCDP000230

PATIENT
  Age: 14 Year
  Sex: Female
  Weight: 68 kg

DRUGS (1)
  1. LIDOCAINE [Suspect]
     Active Substance: LIDOCAINE
     Indication: Product used for unknown indication
     Dosage: UNK DOSE OF LIDOCAINE INFUSION (PFT) (STARTED ON POSTOPERATIVE DAY 6)

REACTIONS (3)
  - Headache [None]
  - Diplopia [Recovered/Resolved]
  - Tinnitus [Recovered/Resolved]
